FAERS Safety Report 15082139 (Version 1)
Quarter: 2018Q2

REPORT INFORMATION
  Report Type: Spontaneous
  Country: FR (occurrence: FR)
  Receive Date: 20180628
  Receipt Date: 20180628
  Transmission Date: 20180711
  Serious: Yes (Hospitalization)
  Sender: FDA-Public Use
  Company Number: FR-TEVA-2018-FR-913756

PATIENT
  Age: 68 Year
  Sex: Female

DRUGS (8)
  1. ZOLPIDEM [Concomitant]
     Active Substance: ZOLPIDEM\ZOLPIDEM TARTRATE
     Route: 048
     Dates: start: 20180422, end: 20180510
  2. RIFAMPICINE [Concomitant]
     Active Substance: RIFAMPIN
     Indication: OSTEITIS
     Dosage: 600 MILLIGRAM DAILY;
     Route: 048
     Dates: start: 20180501
  3. CETORNAN 10 G, POUDRE POUR SOLUTION BUVABLE ET SOLUTION ENT?RALE [Concomitant]
     Indication: STARVATION
     Dosage: 2 DOSAGE FORMS DAILY;
     Route: 048
     Dates: start: 20180422, end: 20180510
  4. PRIMPERAN [Concomitant]
     Active Substance: METOCLOPRAMIDE HYDROCHLORIDE
     Route: 048
     Dates: start: 20180502, end: 20180510
  5. LANSOPRAZOLE. [Suspect]
     Active Substance: LANSOPRAZOLE
     Indication: GASTROINTESTINAL DISORDER
     Dosage: 30 MILLIGRAM DAILY;
     Route: 048
     Dates: start: 20180420, end: 20180510
  6. METFORMINE [Concomitant]
     Active Substance: METFORMIN HYDROCHLORIDE
     Indication: DIABETES MELLITUS
     Dosage: 1000 MILLIGRAM DAILY;
     Route: 048
     Dates: start: 20180425, end: 20180510
  7. FOLINORAL [Concomitant]
     Active Substance: LEUCOVORIN CALCIUM
     Indication: DRUG TOXICITY PROPHYLAXIS
     Dosage: 10 MILLIGRAM DAILY;
     Route: 048
     Dates: start: 20170502, end: 20170510
  8. BACTRIM [Suspect]
     Active Substance: SULFAMETHOXAZOLE\TRIMETHOPRIM
     Indication: OSTEITIS
     Dosage: 2 DOSAGE FORMS DAILY;
     Route: 048
     Dates: start: 20180501, end: 20180510

REACTIONS (1)
  - Hyponatraemia [Recovered/Resolved]

NARRATIVE: CASE EVENT DATE: 20180510
